FAERS Safety Report 7206327-2 (Version None)
Quarter: 2011Q1

REPORT INFORMATION
  Report Type: 
  Country: None (occurrence: None)
  Receive Date: 20110103
  Receipt Date: 20110103
  Transmission Date: 20110831
  Serious: Yes (Hospitalization)
  Sender: FDA-Public Use
  Company Number: PHHO2008DE01766

PATIENT
  Sex: Female
  Weight: 79 kg

DRUGS (2)
  1. TAVANIC [Concomitant]
  2. CERTICAN [Suspect]
     Indication: CONGENITAL CYSTIC KIDNEY DISEASE
     Dosage: UNK
     Route: 048
     Dates: start: 20071002, end: 20080115

REACTIONS (9)
  - FATIGUE [None]
  - PNEUMONITIS [None]
  - DYSPNOEA [None]
  - DYSPNOEA EXERTIONAL [None]
  - ASTHENIA [None]
  - LUNG DISORDER [None]
  - COUGH [None]
  - MALAISE [None]
  - LYMPHOCYTIC INFILTRATION [None]
